FAERS Safety Report 7381579-7 (Version None)
Quarter: 2011Q1

REPORT INFORMATION
  Report Type: 
  Country: None (occurrence: None)
  Receive Date: 20110329
  Receipt Date: 20101001
  Transmission Date: 20110831
  Serious: Yes (Hospitalization)
  Sender: FDA-Public Use
  Company Number: US-BAYER-201034826NA

PATIENT
  Sex: Female
  Weight: 108 kg

DRUGS (14)
  1. SULFAMETHOXAZOLE AND TRIMETHOPRIM DOUBLE STRENGTH [Concomitant]
  2. UNCODEABLE ^UNCLASSIFIABLE^ [Concomitant]
  3. PROMETHAZINE [Concomitant]
  4. OCELLA [Suspect]
  5. ZOCOR [Concomitant]
  6. YASMIN [Suspect]
  7. YAZ [Suspect]
     Dosage: UNK
     Dates: start: 20080201, end: 20080401
  8. HYDROCODONE BITARTRATE AND ACETAMINOPHEN [Concomitant]
  9. PAROXETINE HCL [Concomitant]
  10. METOPROLOL TARTRATE [Concomitant]
  11. SEROQUEL [Concomitant]
  12. CIPROFLOXACIN [Concomitant]
  13. NASONEX [Concomitant]
  14. LISINOPRIL [Concomitant]

REACTIONS (4)
  - INJURY [None]
  - CORONARY ARTERY DISEASE [None]
  - ACUTE MYOCARDIAL INFARCTION [None]
  - MYOCARDIAL INFARCTION [None]
